FAERS Safety Report 5317133-8 (Version None)
Quarter: 2007Q2

REPORT INFORMATION
  Report Type: 
  Country: None (occurrence: None)
  Receive Date: 20070504
  Receipt Date: 20070424
  Transmission Date: 20071010
  Serious: Yes (Death)
  Sender: FDA-Public Use
  Company Number: JP-PFIZER INC-2007033055

PATIENT
  Age: 79 Year
  Sex: Male
  Weight: 72.6 kg

DRUGS (15)
  1. VFEND [Suspect]
     Indication: PYREXIA
     Route: 048
     Dates: start: 20060907, end: 20060920
  2. VFEND [Suspect]
     Route: 042
     Dates: start: 20060921, end: 20060926
  3. HEPARIN SODIUM [Concomitant]
     Route: 042
     Dates: start: 20060907, end: 20060921
  4. CYLOCIDE [Concomitant]
     Route: 042
     Dates: start: 20060911, end: 20060913
  5. MODACIN [Concomitant]
     Indication: INFECTION
     Route: 042
     Dates: start: 20060911, end: 20060913
  6. VANCOMYCIN [Concomitant]
     Indication: INFECTION
     Route: 042
     Dates: start: 20060912, end: 20060920
  7. CARBENIN [Concomitant]
     Indication: INFECTION
     Route: 042
     Dates: start: 20060913, end: 20060917
  8. ANTITHROMBOTIC AGENTS [Concomitant]
     Route: 042
     Dates: start: 20060913, end: 20060915
  9. BIAPENEM [Concomitant]
     Indication: INFECTION
     Route: 042
     Dates: start: 20060917, end: 20060920
  10. TAZOCIN [Concomitant]
     Indication: INFECTION
     Route: 042
     Dates: start: 20060920, end: 20060923
  11. AMIKACIN [Concomitant]
     Indication: INFECTION
     Route: 042
  12. AZACTAM [Concomitant]
     Indication: INFECTION
     Route: 042
  13. FOY [Concomitant]
     Route: 042
  14. SOLU-MEDROL [Concomitant]
     Route: 042
     Dates: start: 20060921, end: 20060928
  15. NEUTROGIN [Concomitant]
     Indication: WHITE BLOOD CELL COUNT DECREASED
     Route: 042
     Dates: start: 20060922, end: 20060926

REACTIONS (1)
  - DEATH [None]
